FAERS Safety Report 4793720-0 (Version None)
Quarter: 2005Q4

REPORT INFORMATION
  Report Type: 
  Country: None (occurrence: None)
  Receive Date: 20051011
  Receipt Date: 20050921
  Transmission Date: 20060501
  Serious: Yes (Hospitalization)
  Sender: FDA-Public Use
  Company Number: PHBS2005JP13897

PATIENT
  Age: 59 Year
  Sex: Female
  Weight: 42 kg

DRUGS (3)
  1. MELLARIL [Suspect]
     Indication: MANIA
     Route: 048
  2. ETIZOLAM [Concomitant]
  3. BIPERIDEN HYDROCHLORIDE TAB [Concomitant]

REACTIONS (10)
  - BLOOD CREATINE PHOSPHOKINASE INCREASED [None]
  - BLOOD CREATINE PHOSPHOKINASE MM [None]
  - DEHYDRATION [None]
  - DEPRESSED LEVEL OF CONSCIOUSNESS [None]
  - HYPERNATRAEMIA [None]
  - PYREXIA [None]
  - RASH [None]
  - RASH GENERALISED [None]
  - RENAL IMPAIRMENT [None]
  - RHABDOMYOLYSIS [None]
